FAERS Safety Report 23521338 (Version 1)
Quarter: 2024Q1

REPORT INFORMATION
  Report Type: Other
  Country: US (occurrence: GB)
  Receive Date: 20240214
  Receipt Date: 20240214
  Transmission Date: 20240409
  Serious: Yes (Hospitalization, Other)
  Sender: FDA-Public Use
  Company Number: None

PATIENT
  Age: 74 Year

DRUGS (31)
  1. PREDNISOLONE [Suspect]
     Active Substance: PREDNISOLONE
     Indication: Product used for unknown indication
     Dosage: UNK, (SIX TO BE TAKEN EACH MORNING AS A SINGLE DOSE. 15MG OM 3/7, 10MG OM 3/7, 5MG OM 3/7 (TABLET))
     Route: 065
  2. LANOLIN\LIGHT MINERAL OIL\PARAFFIN [Concomitant]
     Active Substance: LANOLIN\LIGHT MINERAL OIL\PARAFFIN
     Indication: Product used for unknown indication
     Dosage: UNK, (APPLY AS REQUIRED)
     Route: 065
  3. BECLOMETHASONE DIPROPIONATE\FORMOTEROL FUMARATE\GLYCOPYRROLATE [Concomitant]
     Active Substance: BECLOMETHASONE DIPROPIONATE\FORMOTEROL FUMARATE\GLYCOPYRROLATE
     Indication: Product used for unknown indication
     Dosage: 4 DOSAGE FORM PER DAY (87MICROGRAMS/DOSE / 5MICROGRAMS/DOSE / 9MICROGRAMS/DOSEPUFFS/DAY)
  4. CALCIUM CARBONATE\SODIUM ALGINATE\SODIUM BICARBONATE [Concomitant]
     Active Substance: CALCIUM CARBONATE\SODIUM ALGINATE\SODIUM BICARBONATE
     Indication: Product used for unknown indication
     Dosage: UNK, (10-20ML TO BE TAKEN AFTER MEALS AND AT BEDTIME)
     Route: 065
  5. LANOLIN\ZINC OXIDE [Concomitant]
     Active Substance: LANOLIN\ZINC OXIDE
     Indication: Product used for unknown indication
     Dosage: 3 DOSAGE FORM PER DAY (APPLY)
     Route: 061
  6. ALBUTEROL [Concomitant]
     Active Substance: ALBUTEROL
     Indication: Product used for unknown indication
     Dosage: UNK, (100MICROGRAMS/DOSEONE OR TWO PUFFS TO BE INHALED FOUR TIMES A DAY WHEN REQUIRED)
  7. COMIRNATY (TOZINAMERAN) [Concomitant]
     Active Substance: TOZINAMERAN
     Indication: Product used for unknown indication
     Dosage: 15MICROGRAMS/15MICROGRAMS/0.3ML DOSE
     Route: 030
  8. AMOXICILLIN\CLAVULANATE POTASSIUM [Concomitant]
     Active Substance: AMOXICILLIN\CLAVULANATE POTASSIUM
     Indication: Product used for unknown indication
     Dosage: 1875 MILLIGRAM / DAY
     Route: 065
  9. CYCLIZINE [Concomitant]
     Active Substance: CYCLIZINE
     Indication: Product used for unknown indication
     Dosage: 150 MILLIGRAM, PRN
     Route: 065
  10. LACTULOSE [Concomitant]
     Active Substance: LACTULOSE
     Indication: Product used for unknown indication
     Dosage: 30 MILLILITER PER DAY (3.1-3.7G/5ML SPOONFUL/DAY)
     Route: 065
  11. OMEPRAZOLE [Concomitant]
     Active Substance: OMEPRAZOLE
     Indication: Product used for unknown indication
     Dosage: 40 MILLIGRAM, PER DAY (EVERY MORNING)
     Route: 065
  12. NYSTATIN [Concomitant]
     Active Substance: NYSTATIN
     Indication: Product used for unknown indication
     Dosage: 4 MILLILITER /DAY
     Route: 065
  13. ACETAMINOPHEN [Concomitant]
     Active Substance: ACETAMINOPHEN
     Indication: Product used for unknown indication
     Dosage: 500 MILLIGRAM (ONE TO BE TAKEN EVERY 4-6 HOURS UP TO FOUR TIMES A DAY)
     Route: 065
  14. DOCUSATE [Concomitant]
     Active Substance: DOCUSATE
     Indication: Product used for unknown indication
     Dosage: 200 MILLIGRAM/DAY
     Route: 065
  15. ACETAMINOPHEN [Concomitant]
     Active Substance: ACETAMINOPHEN
     Indication: Product used for unknown indication
     Dosage: 4 GRAM, PRN
     Route: 065
  16. MORPHINE [Concomitant]
     Active Substance: MORPHINE
     Indication: Pain
     Dosage: UNK (10MG/5ML 2.5-5ML TO BE TAKEN UP TO EVERY 4 HOURS)
     Route: 065
  17. CHLORHEXIDINE GLUCONATE [Concomitant]
     Active Substance: CHLORHEXIDINE GLUCONATE
     Indication: Product used for unknown indication
     Dosage: 20 MILLILITER PER DAY (USED AS A MOUTHWASH)
     Route: 065
  18. FUROSEMIDE [Concomitant]
     Active Substance: FUROSEMIDE
     Indication: Product used for unknown indication
     Dosage: 20 MILLIGRAM PER DAY (EACH MORNING)
     Route: 065
  19. ENTECAVIR [Concomitant]
     Active Substance: ENTECAVIR
     Indication: Product used for unknown indication
     Dosage: 500 MICROGRAM/DAY
     Route: 065
  20. POLYETHYLENE GLYCOL 4000 [Concomitant]
     Active Substance: POLYETHYLENE GLYCOL 4000
     Indication: Product used for unknown indication
     Dosage: UNK (4 SACHETS DISSOLVED IN WATER (D1), INCREASE 2 SACHETS DAILY TO MAX. 8 SACHETS DAILY)
     Route: 065
  21. CALCIUM CARBONATE [Concomitant]
     Active Substance: CALCIUM CARBONATE
     Indication: Product used for unknown indication
     Dosage: 2.5 GRAM/DAY
     Route: 065
  22. ATORVASTATIN [Concomitant]
     Active Substance: ATORVASTATIN
     Indication: Product used for unknown indication
     Dosage: 20 MILLIGRAM/DAY
     Route: 065
  23. ACYCLOVIR [Concomitant]
     Active Substance: ACYCLOVIR
     Indication: Product used for unknown indication
     Dosage: 5 DOSAGE FORM PER DAY (APPLY)
     Route: 061
  24. CARBOCYSTEINE [Concomitant]
     Active Substance: CARBOCYSTEINE
     Indication: Product used for unknown indication
     Dosage: 2250 MILLIGRAM/DAY
     Route: 065
  25. CHOLECALCIFEROL [Concomitant]
     Active Substance: CHOLECALCIFEROL
     Indication: Product used for unknown indication
     Dosage: 800 IU /DAY
     Route: 065
  26. AMOXICILLIN [Concomitant]
     Active Substance: AMOXICILLIN
     Indication: Product used for unknown indication
     Dosage: 1500 MILLIGRAM/DAY
     Route: 065
  27. CYCLOPHOSPHAMIDE [Concomitant]
     Active Substance: CYCLOPHOSPHAMIDE
     Indication: Product used for unknown indication
     Dosage: UNK
     Route: 065
     Dates: start: 20230623
  28. RITUXIMAB [Concomitant]
     Active Substance: RITUXIMAB
     Indication: Product used for unknown indication
     Dosage: UNK
     Route: 065
     Dates: start: 20230623
  29. SENNA [Concomitant]
     Active Substance: SENNA LEAF\SENNOSIDES\SENNOSIDES A AND B
     Indication: Product used for unknown indication
     Dosage: 7.5 MILLIGRAM (ONE OR TWO TO BE TAKEN AT NIGHT)
     Route: 065
  30. DICLOFENAC DIETHYLAMINE [Concomitant]
     Active Substance: DICLOFENAC DIETHYLAMINE
     Indication: Product used for unknown indication
     Dosage: 2 DOSAGE FORM/DAY
     Route: 061
  31. VINCRISTINE [Concomitant]
     Active Substance: VINCRISTINE
     Indication: Product used for unknown indication
     Dosage: UNK
     Route: 065
     Dates: start: 20230623

REACTIONS (1)
  - Delirium [Unknown]
